FAERS Safety Report 5159016-2 (Version None)
Quarter: 2006Q4

REPORT INFORMATION
  Report Type: 
  Country: None (occurrence: None)
  Receive Date: 20061117
  Receipt Date: 20061106
  Transmission Date: 20070319
  Serious: Yes (Hospitalization)
  Sender: FDA-Public Use
  Company Number: GXKR2006GB07100

PATIENT
  Age: 90 Year
  Sex: Male

DRUGS (4)
  1. FUROSEMIDE+AMILORIDE HYDROCHLORIDE (NGX) AMILORIDE, FUROSEMIDE) UNKNOW [Suspect]
     Indication: HYPERTENSION
     Dosage: QD; ORAL
     Route: 048
     Dates: end: 20060516
  2. NIFEDIPINE [Suspect]
     Indication: HYPERTENSION
     Dosage: 10 MG, BID; ORAL
     Route: 048
     Dates: end: 20060516
  3. ACETYLSALICYLIC ACID SRT [Concomitant]
  4. SIMVASTATIN [Concomitant]

REACTIONS (3)
  - FALL [None]
  - ORTHOSTATIC HYPOTENSION [None]
  - SYNCOPE [None]
